FAERS Safety Report 4568022-8 (Version None)
Quarter: 2005Q1

REPORT INFORMATION
  Report Type: 
  Country: None (occurrence: None)
  Receive Date: 20050202
  Receipt Date: 20050124
  Transmission Date: 20050727
  Serious: Yes (Hospitalization, Other)
  Sender: FDA-Public Use
  Company Number: PHEH2005US01269

PATIENT
  Age: 56 Year
  Sex: Female

DRUGS (1)
  1. STARLIX [Suspect]
     Dosage: UNK, UNK
     Route: 048
     Dates: start: 20050104

REACTIONS (4)
  - HEPATIC ENZYME INCREASED [None]
  - HEPATITIS [None]
  - NAUSEA [None]
  - PRURITUS [None]
